FAERS Safety Report 16733465 (Version 1)
Quarter: 2019Q3

REPORT INFORMATION
  Report Type: Spontaneous
  Country: GB (occurrence: GB)
  Receive Date: 20190823
  Receipt Date: 20190823
  Transmission Date: 20191005
  Serious: Yes (Disabling)
  Sender: FDA-Public Use
  Company Number: GB-TEVA-2019-GB-1095527

PATIENT
  Age: 77 Year
  Sex: Male
  Weight: 69 kg

DRUGS (20)
  1. ISOSORBIDE MONONITRATE. [Concomitant]
     Active Substance: ISOSORBIDE MONONITRATE
     Dosage: TAKE ONE TWICE DAILY
     Dates: start: 20190305
  2. MONTELUKAST [Suspect]
     Active Substance: MONTELUKAST SODIUM
     Dosage: AT NIGHT 10 MILLIGRAM
     Dates: start: 20190305
  3. FLUTICASONE FUROATE [Concomitant]
     Active Substance: FLUTICASONE FUROATE
     Dosage: USE ONCE DAILY
     Dates: start: 20190305
  4. BISOPROLOL [Concomitant]
     Active Substance: BISOPROLOL
     Dates: start: 20190305
  5. METFORMIN [Concomitant]
     Active Substance: METFORMIN HYDROCHLORIDE
     Dates: start: 20190305, end: 20190718
  6. FLUCLOXACILLIN [Concomitant]
     Active Substance: FLUCLOXACILLIN
     Dates: start: 20190507, end: 20190514
  7. LANSOPRAZOLE. [Concomitant]
     Active Substance: LANSOPRAZOLE
     Dates: start: 20190305
  8. CO-AMOXICLAV [Concomitant]
     Active Substance: AMOXICILLIN\CLAVULANATE POTASSIUM
     Dates: start: 20190614, end: 20190621
  9. FEXOFENADINE [Concomitant]
     Active Substance: FEXOFENADINE HYDROCHLORIDE
     Dates: start: 20190305
  10. LAXIDO [Concomitant]
     Active Substance: POLYETHYLENE GLYCOL 3350\POTASSIUM CHLORIDE\SODIUM BICARBONATE\SODIUM CHLORIDE
     Dosage: AT NIGHT
     Dates: start: 20190305
  11. CITALOPRAM [Concomitant]
     Active Substance: CITALOPRAM HYDROBROMIDE
     Dates: start: 20190625, end: 20190626
  12. NITROMIN [Concomitant]
     Dates: start: 20190305
  13. SCOPODERM [Concomitant]
     Active Substance: SCOPOLAMINE
     Dosage: APPLY
     Dates: start: 20190501, end: 20190507
  14. DAPSONE. [Concomitant]
     Active Substance: DAPSONE
     Dates: start: 20190710
  15. SALBUTAMOL [Concomitant]
     Active Substance: ALBUTEROL
     Dates: start: 20190305
  16. COMBODART [Concomitant]
     Active Substance: DUTASTERIDE\TAMSULOSIN
     Dates: start: 20190305
  17. BUDESONIDE. [Concomitant]
     Active Substance: BUDESONIDE
     Dates: start: 20190305
  18. BACTROBAN [Concomitant]
     Active Substance: MUPIROCIN\MUPIROCIN CALCIUM
     Dosage: APPLY 2-3 TIMES/DAY
     Dates: start: 20190507, end: 20190508
  19. ATORVASTATIN [Concomitant]
     Active Substance: ATORVASTATIN
     Dates: start: 20190305
  20. CO-DYDRAMOL [Concomitant]
     Active Substance: ACETAMINOPHEN\DIHYDROCODEINE
     Dosage: TAKE 1 OR 2 4 TIMES/DAY
     Dates: start: 20190305

REACTIONS (1)
  - Nightmare [Recovered/Resolved]

NARRATIVE: CASE EVENT DATE: 20190718
